FAERS Safety Report 7670249-3 (Version None)
Quarter: 2011Q3

REPORT INFORMATION
  Report Type: 
  Country: None (occurrence: None)
  Receive Date: 20110809
  Receipt Date: 20110805
  Transmission Date: 20111222
  Serious: Yes (Other)
  Sender: FDA-Public Use
  Company Number: US-BRISTOL-MYERS SQUIBB COMPANY-15935893

PATIENT
  Age: 30 Year
  Sex: Male

DRUGS (3)
  1. DEPAKOTE [Concomitant]
     Dosage: 500MG 8AM + 1500MG 8HS
     Route: 048
  2. ABILIFY [Suspect]
     Indication: BIPOLAR I DISORDER
     Dosage: INTERRUPTED ON 23JUL11, RESTARTED ON 28JUL11,1 DF=15MG 14JUL-22JUL11
     Route: 048
     Dates: start: 20110714
  3. TRAZODONE HCL [Concomitant]

REACTIONS (2)
  - PSYCHOTIC DISORDER [None]
  - TREATMENT NONCOMPLIANCE [None]
